FAERS Safety Report 6141665-6 (Version None)
Quarter: 2009Q1

REPORT INFORMATION
  Report Type: 
  Country: None (occurrence: None)
  Receive Date: 20090331
  Receipt Date: 20090331
  Transmission Date: 20090719
  Serious: Yes (Life-Threatening)
  Sender: FDA-Public Use
  Company Number: None

PATIENT
  Sex: Female
  Weight: 49.8957 kg

DRUGS (1)
  1. ERGONAVINE MALEATE ^COMPOUNDING^ [Suspect]
     Indication: MIGRAINE PROPHYLAXIS
     Dosage: 1 0.2MG CAPSULE BID PO
     Route: 048
     Dates: start: 20081124, end: 20090328

REACTIONS (4)
  - DYSPNOEA PAROXYSMAL NOCTURNAL [None]
  - NASAL CONGESTION [None]
  - NAUSEA [None]
  - TINNITUS [None]
